FAERS Safety Report 12061341 (Version 1)
Quarter: 2016Q1

REPORT INFORMATION
  Report Type: Report from Study
  Country: AU (occurrence: AU)
  Receive Date: 20160210
  Receipt Date: 20160210
  Transmission Date: 20160526
  Serious: Yes (Other)
  Sender: FDA-Public Use
  Company Number: AU-INCYTE CORPORATION-2014IN002889

PATIENT
  Age: 63 Year
  Sex: Male

DRUGS (2)
  1. JAKAFI [Suspect]
     Active Substance: RUXOLITINIB
     Dosage: 10 MG, BID
     Route: 048
  2. JAKAFI [Suspect]
     Active Substance: RUXOLITINIB
     Indication: MYELOFIBROSIS
     Dosage: 20 MG, BID
     Route: 048
     Dates: start: 201210

REACTIONS (6)
  - Anisocytosis [Unknown]
  - Poikilocytosis [Unknown]
  - Pancytopenia [Recovering/Resolving]
  - Neutrophil toxic granulation present [Unknown]
  - Haemoglobin decreased [Unknown]
  - Red blood cell elliptocytes present [Unknown]

NARRATIVE: CASE EVENT DATE: 20150918
